FAERS Safety Report 8846874 (Version 1)
Quarter: 2012Q4

REPORT INFORMATION
  Report Type: Spontaneous
  Country: US (occurrence: None)
  Receive Date: 20121016
  Receipt Date: 20121016
  Transmission Date: 20130627
  Serious: Yes (Other)
  Sender: FDA-Public Use
  Company Number: FK201202995

PATIENT
  Age: 93 Year
  Sex: Female

DRUGS (1)
  1. DIPHENHYDRAMINE [Suspect]
     Indication: ANAESTHESIA
     Route: 058

REACTIONS (5)
  - Delirium [None]
  - Agitation [None]
  - Aggression [None]
  - Mydriasis [None]
  - Dry mouth [None]
